FAERS Safety Report 9219749 (Version 1)
Quarter: 2013Q1

REPORT INFORMATION
  Report Type: Spontaneous
  Country: US (occurrence: None)
  Receive Date: 20120831
  Receipt Date: 20120831
  Transmission Date: 20140127
  Serious: No
  Sender: FDA-Public Use
  Company Number: 1000030227

PATIENT
  Sex: Female

DRUGS (13)
  1. DALIRESP [Suspect]
     Indication: CHRONIC OBSTRUCTIVE PULMONARY DISEASE
     Route: 048
     Dates: start: 20120424, end: 20120428
  2. ZYPREXA (OLANZAPINE) [Concomitant]
  3. PROZAC (FLUOXETINE HYDROCHLORIDE) (FLUOXETINE HYDROCHLORIDE) [Concomitant]
  4. XANAX (ALPRAZOLAM) (ALPRAZOLAM) [Concomitant]
  5. LAMICTAL (LAMOTRIGINE) (LAMOTRIGINE) [Concomitant]
  6. MELOXICAM (MELOXICAM) (MELOXICAM) [Concomitant]
  7. HUMIRA (ADALIMUMAB) (ADALIMUMAB) [Concomitant]
  8. METHOTREXATE (METHOTREXATE) (METHOTREXATE) [Concomitant]
  9. NORCO (ACETAMINOPHEN, HYDROCODONE) (ACETAMINOPHEN, HYDROCODONE) [Concomitant]
  10. OXYCONTIN (OXYCODONE HYDROCHLORIDE) (OXYCODONE HYDROCHLORIDE) [Concomitant]
  11. ESTROGEN (ESTRADIOL) (ESTRADIOL) [Concomitant]
  12. PROGESTERONE (PROGESTERONE) (PROGESTERONE) [Concomitant]
  13. LEVSIN (HYOSCYAMINE SULFATE) (HYOSCYAMINE SULFATE) [Concomitant]

REACTIONS (2)
  - Depression [None]
  - Vision blurred [None]
